FAERS Safety Report 8117968 (Version 3)
Quarter: 2021Q2

REPORT INFORMATION
  Report Type: Report from Study
  Country: AR (occurrence: AR)
  Receive Date: 20110902
  Receipt Date: 20210427
  Transmission Date: 20210717
  Serious: Yes (Death, Other)
  Sender: FDA-Public Use
  Company Number: AR-SHIRE-SPV1-2011-01147

PATIENT
  Age: 10 Year
  Sex: Male
  Weight: 26 kg

DRUGS (5)
  1. CLARIMAX [Concomitant]
     Indication: BRONCHITIS
     Dosage: 250 MG, 2X/DAY:BID
     Route: 048
     Dates: start: 20091222
  2. IDURSULFASE [Suspect]
     Active Substance: IDURSULFASE
     Indication: MUCOPOLYSACCHARIDOSIS II
     Dosage: 13 MG, 1X/WEEK
     Route: 041
     Dates: start: 20091110, end: 20110607
  3. ALBUTEROL SULFATE. [Concomitant]
     Active Substance: ALBUTEROL SULFATE
     Indication: BRONCHITIS
     Dosage: 1 DF (1 PUFF), UNKNOWN
     Route: 055
     Dates: start: 20091222
  4. PARACETAMOL [Concomitant]
     Active Substance: ACETAMINOPHEN
     Indication: PREMEDICATION
     Dosage: 5 ML, UNKNOWN
     Route: 048
     Dates: start: 20091110
  5. DIPHENHYDRAMINE. [Concomitant]
     Active Substance: DIPHENHYDRAMINE
     Indication: PREMEDICATION
     Dosage: 5.0 ML, AS REQ^D
     Route: 048
     Dates: start: 20091110

REACTIONS (7)
  - Flushing [Recovered/Resolved]
  - Cyanosis [Recovered/Resolved]
  - Cardiac failure [Fatal]
  - Sudden death [Fatal]
  - Rash [Recovered/Resolved]
  - Cardio-respiratory arrest [Fatal]
  - Increased bronchial secretion [Recovered/Resolved]

NARRATIVE: CASE EVENT DATE: 20091229
